FAERS Safety Report 9121952 (Version 2)
Quarter: 2013Q1

REPORT INFORMATION
  Report Type: Report from Study
  Country: US (occurrence: US)
  Receive Date: 20130114
  Receipt Date: 20130312
  Transmission Date: 20140127
  Serious: Yes (Other)
  Sender: FDA-Public Use
  Company Number: US-BAYER-2013-002773

PATIENT
  Age: 71 Year
  Sex: Male

DRUGS (14)
  1. BETASERON [Suspect]
     Indication: SECONDARY PROGRESSIVE MULTIPLE SCLEROSIS
     Dosage: UNK
     Dates: start: 19940526, end: 20121207
  2. BETASERON [Suspect]
     Indication: SECONDARY PROGRESSIVE MULTIPLE SCLEROSIS
     Dosage: .3 MG, QD
  3. BETASERON [Suspect]
     Indication: SECONDARY PROGRESSIVE MULTIPLE SCLEROSIS
     Dosage: 8 MIU, QOD
     Route: 058
     Dates: start: 20130105
  4. OXYBUTYNIN CHLORIDE [Concomitant]
     Dosage: 15 MG, TID
  5. ROPINIROLE HYDROCHLORIDE [Concomitant]
     Dosage: 2 MG, TID
  6. LISINOPRIL [Concomitant]
     Dosage: 40 MG, QD
  7. TEGRETOL [Concomitant]
     Dosage: 200 MG, TID
  8. PROPANOLOL [Concomitant]
     Dosage: 60 MG, QD
  9. NORVASC [Concomitant]
     Dosage: 10 MG, QD
  10. ASPIRIN [Concomitant]
     Dosage: 81 MG, QD
  11. CRANBERRY [Concomitant]
  12. POTASSIUM [Concomitant]
     Dosage: 99 MG, QD
  13. FOLIC ACID [Concomitant]
     Dosage: 800 ?G, QD
  14. VITAMIN B12 NOS [Concomitant]
     Dosage: 1000 ?G, QD

REACTIONS (16)
  - Pyrexia [Recovered/Resolved]
  - Pain [Recovered/Resolved]
  - Chills [Recovered/Resolved]
  - Tremor [Recovered/Resolved]
  - Limb discomfort [Recovered/Resolved]
  - Penile pain [Recovered/Resolved]
  - Confusional state [Not Recovered/Not Resolved]
  - Hallucination [Not Recovered/Not Resolved]
  - Hallucination, visual [None]
  - Quadriplegia [None]
  - Metabolic encephalopathy [None]
  - Toxic encephalopathy [None]
  - Restless legs syndrome [None]
  - Escherichia urinary tract infection [Recovering/Resolving]
  - Dehydration [None]
  - Insomnia [None]
